FAERS Safety Report 22242580 (Version 1)
Quarter: 2023Q2

REPORT INFORMATION
  Report Type: Spontaneous
  Country: US (occurrence: None)
  Receive Date: 20230420
  Receipt Date: 20230420
  Transmission Date: 20230721
  Serious: No
  Sender: FDA-Public Use
  Company Number: None

PATIENT
  Age: 52 Year
  Sex: Female

DRUGS (1)
  1. DALFAMPRIDINE [Suspect]
     Active Substance: DALFAMPRIDINE
     Indication: Multiple sclerosis
     Dosage: 10MG BID ORAL
     Route: 048
     Dates: start: 202208

REACTIONS (3)
  - Urinary tract infection [None]
  - Sepsis [None]
  - Pulmonary thrombosis [None]

NARRATIVE: CASE EVENT DATE: 20230115
